FAERS Safety Report 24594169 (Version 1)
Quarter: 2024Q4

REPORT INFORMATION
  Report Type: Spontaneous
  Country: NL (occurrence: NL)
  Receive Date: 20241108
  Receipt Date: 20241108
  Transmission Date: 20250115
  Serious: Yes (Hospitalization, Other)
  Sender: RANBAXY
  Company Number: NL-RANBAXY-2014R1-83028

PATIENT
  Age: 75 Year
  Sex: Male

DRUGS (2)
  1. CAPECITABINE [Suspect]
     Active Substance: CAPECITABINE
     Indication: Chemotherapy
     Dosage: FOR 14 DAYS DURING THE 3 WEEK CYCLE
     Route: 048
  2. OXALIPLATIN [Suspect]
     Active Substance: OXALIPLATIN
     Indication: Chemotherapy
     Dosage: ONCE EVERY 3 WEEKS
     Route: 042

REACTIONS (6)
  - Acute coronary syndrome [Recovered/Resolved]
  - Chest pain [Recovered/Resolved]
  - Electrocardiogram T wave inversion [Recovered/Resolved]
  - Blood creatine phosphokinase increased [Recovered/Resolved]
  - Arteriospasm coronary [Recovered/Resolved]
  - Troponin T increased [Recovered/Resolved]
